FAERS Safety Report 7732005-7 (Version None)
Quarter: 2011Q3

REPORT INFORMATION
  Report Type: 
  Country: None (occurrence: None)
  Receive Date: 20110906
  Receipt Date: 20110727
  Transmission Date: 20111222
  Serious: No
  Sender: FDA-Public Use
  Company Number: US-AMGEN-USASP2011038159

PATIENT
  Age: 84 Year
  Sex: Female

DRUGS (4)
  1. VITAMIN D [Concomitant]
  2. PROLIA [Suspect]
     Indication: OSTEOPOROSIS POSTMENOPAUSAL
     Dosage: 60 MG, Q6MO
     Dates: start: 20110719
  3. CALCIUM CARBONATE [Concomitant]
  4. MULTIVITAMIN                       /00097801/ [Concomitant]
     Dosage: UNK

REACTIONS (2)
  - CYST [None]
  - BACK PAIN [None]
